FAERS Safety Report 7812004-7 (Version None)
Quarter: 2011Q4

REPORT INFORMATION
  Report Type: 
  Country: None (occurrence: None)
  Receive Date: 20111011
  Receipt Date: 20110926
  Transmission Date: 20120403
  Serious: Yes (Hospitalization)
  Sender: FDA-Public Use
  Company Number: TPA2011A06171

PATIENT
  Age: 73 Year
  Sex: Male
  Weight: 81.6475 kg

DRUGS (3)
  1. CADUET [Concomitant]
  2. ACTOS [Suspect]
     Indication: TYPE 2 DIABETES MELLITUS
     Dosage: 45 MG,1 IN 1 D, PER ORAL
     Route: 048
  3. JANUVIA (SITAGLIPTIN HYDROCHLORIDE) [Concomitant]

REACTIONS (3)
  - COMA [None]
  - SEPSIS [None]
  - ESCHERICHIA URINARY TRACT INFECTION [None]
